FAERS Safety Report 7206472-1 (Version None)
Quarter: 2011Q1

REPORT INFORMATION
  Report Type: 
  Country: None (occurrence: None)
  Receive Date: 20110103
  Receipt Date: 20101229
  Transmission Date: 20110831
  Serious: Yes (Other)
  Sender: FDA-Public Use
  Company Number: FR-PFIZER INC-2010178311

PATIENT
  Age: 70 Year
  Sex: Male

DRUGS (12)
  1. AMLODIPINE BESILATE [Concomitant]
  2. POVIDONE-IODINE [Suspect]
     Dosage: UNK
     Dates: start: 20081104, end: 20081104
  3. INSULATARD [Concomitant]
  4. TARGOCID [Suspect]
     Indication: GANGRENE
     Dosage: UNK
     Route: 042
     Dates: start: 20081030, end: 20081107
  5. HUMALOG [Concomitant]
  6. TAZOCILLINE [Suspect]
     Indication: GANGRENE
     Dosage: UNK
     Route: 042
     Dates: start: 20081030, end: 20081107
  7. PLAVIX [Concomitant]
     Dosage: 75 MG, UNK
  8. EZETROL [Concomitant]
  9. ALPRAZOLAM [Concomitant]
  10. ACEBUTOLOL [Concomitant]
  11. TAHOR [Concomitant]
  12. OFLOCET [Suspect]
     Indication: GANGRENE
     Dosage: 200MG/40ML, UNK
     Route: 042
     Dates: start: 20081030, end: 20081107

REACTIONS (5)
  - SKIN TEST NEGATIVE [None]
  - DISEASE PROGRESSION [None]
  - GANGRENE [None]
  - ACUTE GENERALISED EXANTHEMATOUS PUSTULOSIS [None]
  - RENAL FAILURE ACUTE [None]
